FAERS Safety Report 16970894 (Version 1)
Quarter: 2019Q4

REPORT INFORMATION
  Report Type: Spontaneous
  Country: US (occurrence: US)
  Receive Date: 20191028
  Receipt Date: 20191028
  Transmission Date: 20200122
  Serious: Yes (Other)
  Sender: FDA-Public Use
  Company Number: None

PATIENT
  Age: 69 Year
  Sex: Female
  Weight: 54 kg

DRUGS (10)
  1. OFLOXACIN. [Concomitant]
     Active Substance: OFLOXACIN
  2. MULTIVITAMIN [Concomitant]
     Active Substance: VITAMINS
  3. ATROPINE SULFATE OPHTHALMIC SOLUTION 1% [Suspect]
     Active Substance: ATROPINE SULFATE
     Indication: GLAUCOMA SURGERY
     Dosage: ?          QUANTITY:1 DROP(S);?
     Route: 047
     Dates: start: 20191025, end: 20191027
  4. AMLODIPINE [Concomitant]
     Active Substance: AMLODIPINE BESYLATE
  5. FOSAMAX [Concomitant]
     Active Substance: ALENDRONATE SODIUM
  6. LUMIGAN [Concomitant]
     Active Substance: BIMATOPROST
  7. DORZOLAMIDE [Concomitant]
     Active Substance: DORZOLAMIDE
  8. CALCIUM CITRATE PLUS D [Concomitant]
  9. TIMOLOL. [Concomitant]
     Active Substance: TIMOLOL
  10. PREDNISOLONE ACETATE OPTHALMIC SUSPENSION [Concomitant]

REACTIONS (2)
  - Heart rate irregular [None]
  - Heart rate increased [None]

NARRATIVE: CASE EVENT DATE: 20191027
